FAERS Safety Report 22585553 (Version 1)
Quarter: 2023Q2

REPORT INFORMATION
  Report Type: Spontaneous
  Country: US (occurrence: US)
  Receive Date: 20230610
  Receipt Date: 20230610
  Transmission Date: 20230722
  Serious: Yes (Disabling)
  Sender: FDA-Public Use
  Company Number: US-TEVA-2023-US-2893964

PATIENT
  Age: 11 Year
  Sex: Male

DRUGS (1)
  1. CLONIDINE HYDROCHLORIDE [Suspect]
     Active Substance: CLONIDINE HYDROCHLORIDE
     Indication: Sleep disorder
     Dosage: AT BEDTIME
     Route: 065
     Dates: end: 20230527

REACTIONS (9)
  - Disability [Unknown]
  - Agitation [Recovered/Resolved]
  - Nightmare [Recovered/Resolved]
  - Dyspnoea [Unknown]
  - Psychotic disorder [Recovered/Resolved]
  - Mental disorder [Recovered/Resolved]
  - Feeling abnormal [Recovered/Resolved]
  - Aggression [Unknown]
  - Product use in unapproved indication [Unknown]
